FAERS Safety Report 10880651 (Version 1)
Quarter: 2015Q1

REPORT INFORMATION
  Report Type: Report from Study
  Country: FR (occurrence: FR)
  Receive Date: 20150303
  Receipt Date: 20150303
  Transmission Date: 20150721
  Serious: Yes (Hospitalization)
  Sender: FDA-Public Use
  Company Number: FR-ROCHE-1543866

PATIENT
  Sex: Female

DRUGS (13)
  1. RITUXIMAB [Suspect]
     Active Substance: RITUXIMAB
     Dosage: 1G (D15)
     Route: 065
     Dates: start: 20100319
  2. RITUXIMAB [Suspect]
     Active Substance: RITUXIMAB
     Dosage: 1G (D1)
     Route: 065
     Dates: start: 20101216
  3. RITUXIMAB [Suspect]
     Active Substance: RITUXIMAB
     Route: 065
     Dates: start: 20120417
  4. RITUXIMAB [Suspect]
     Active Substance: RITUXIMAB
     Dosage: 1G (D1)
     Route: 065
     Dates: start: 20100305
  5. RITUXIMAB [Suspect]
     Active Substance: RITUXIMAB
     Route: 065
     Dates: start: 20090713
  6. RITUXIMAB [Suspect]
     Active Substance: RITUXIMAB
     Dosage: 1G (D15)
     Route: 065
     Dates: start: 20090728
  7. RITUXIMAB [Suspect]
     Active Substance: RITUXIMAB
     Dosage: 1G (D1)
     Route: 065
     Dates: start: 20081104
  8. RITUXIMAB [Suspect]
     Active Substance: RITUXIMAB
     Dosage: G (D15)
     Route: 065
     Dates: start: 20101230
  9. RITUXIMAB [Suspect]
     Active Substance: RITUXIMAB
     Dosage: 1G (D15)
     Route: 065
     Dates: start: 20071210
  10. METHOTREXATE [Concomitant]
     Active Substance: METHOTREXATE
     Dosage: 17.5MG WEEKLY, 7.5MG WEEKLY
     Route: 065
  11. RITUXIMAB [Suspect]
     Active Substance: RITUXIMAB
     Indication: RHEUMATOID ARTHRITIS
     Route: 065
     Dates: start: 20071122
  12. RITUXIMAB [Suspect]
     Active Substance: RITUXIMAB
     Dosage: 1G (D15)
     Route: 065
     Dates: start: 20081118
  13. CORTANCYL [Concomitant]
     Active Substance: PREDNISONE
     Dosage: 15MG DAILY, 10MG DAILY, 5MG DAILY, 4MG DAILY
     Route: 065

REACTIONS (11)
  - Superinfection [Recovered/Resolved]
  - Bronchitis [Recovered/Resolved]
  - Hip arthroplasty [Recovered/Resolved]
  - Conjunctivitis [Recovered/Resolved]
  - Joint effusion [Recovered/Resolved]
  - Sinusitis [Recovered/Resolved]
  - Osteoarthritis [Recovered/Resolved with Sequelae]
  - Rhinitis [Recovered/Resolved]
  - Metatarsal excision [Recovered/Resolved]
  - Arthralgia [Recovered/Resolved]
  - Viral infection [Recovered/Resolved]

NARRATIVE: CASE EVENT DATE: 20081107
